FAERS Safety Report 6862383-2 (Version None)
Quarter: 2010Q2

REPORT INFORMATION
  Report Type: 
  Country: None (occurrence: None)
  Receive Date: 20100527
  Receipt Date: 20100305
  Transmission Date: 20101027
  Serious: Yes (Hospitalization, Other)
  Sender: FDA-Public Use
  Company Number: 2010029424

PATIENT
  Sex: Female

DRUGS (2)
  1. CALAN [Suspect]
  2. VERAPAMIL [Suspect]

REACTIONS (3)
  - ABDOMINAL DISCOMFORT [None]
  - DYSPNOEA [None]
  - SWELLING [None]
